FAERS Safety Report 8584266-2 (Version None)
Quarter: 2012Q3

REPORT INFORMATION
  Report Type: 
  Country: None (occurrence: None)
  Receive Date: 20120810
  Receipt Date: 20120802
  Transmission Date: 20120928
  Serious: Yes (Hospitalization)
  Sender: FDA-Public Use
  Company Number: 2008BI009277

PATIENT
  Age: 43 Year
  Sex: Female
  Weight: 113 kg

DRUGS (2)
  1. AVONEX [Suspect]
     Indication: MULTIPLE SCLEROSIS
     Route: 030
     Dates: start: 19980701, end: 20070901
  2. AVONEX [Suspect]
     Route: 030
     Dates: start: 20070901

REACTIONS (8)
  - PYREXIA [None]
  - HEADACHE [None]
  - DRUG HYPERSENSITIVITY [None]
  - BLOOD GLUCOSE INCREASED [None]
  - INSOMNIA [None]
  - COLITIS ULCERATIVE [None]
  - FATIGUE [None]
  - CAMPYLOBACTER GASTROENTERITIS [None]
